FAERS Safety Report 18571749 (Version 1)
Quarter: 2020Q4

REPORT INFORMATION
  Report Type: Report from Study
  Country: US (occurrence: US)
  Receive Date: 20201202
  Receipt Date: 20201202
  Transmission Date: 20210114
  Serious: Yes (Other)
  Sender: FDA-Public Use
  Company Number: US-TEVA-2020-US-1853248

PATIENT
  Age: 56 Year
  Sex: Female

DRUGS (1)
  1. COPAXONE [Suspect]
     Active Substance: GLATIRAMER ACETATE
     Dates: start: 20200807

REACTIONS (8)
  - Multiple sclerosis relapse [Recovering/Resolving]
  - Somnolence [Recovering/Resolving]
  - Stress [Unknown]
  - Sensitivity to weather change [Unknown]
  - Palpitations [Recovered/Resolved]
  - Musculoskeletal stiffness [Recovering/Resolving]
  - Cardiac flutter [Recovered/Resolved]
  - Anxiety [Recovering/Resolving]

NARRATIVE: CASE EVENT DATE: 202011
